FAERS Safety Report 13160322 (Version 1)
Quarter: 2017Q1

REPORT INFORMATION
  Report Type: Report from Study
  Country: IT (occurrence: IT)
  Receive Date: 20170127
  Receipt Date: 20170127
  Transmission Date: 20170428
  Serious: Yes (Hospitalization, Other)
  Sender: FDA-Public Use
  Company Number: IT-GILEAD-2017-0254734

PATIENT
  Age: 67 Year
  Sex: Male
  Weight: 67 kg

DRUGS (28)
  1. CEFTRIAXONE. [Concomitant]
     Active Substance: CEFTRIAXONE
     Indication: PYREXIA
     Dosage: UNK
     Route: 048
     Dates: start: 20161201, end: 20161206
  2. PIPERACILLIN AND TAZOBACTAM [Concomitant]
     Active Substance: PIPERACILLIN SODIUM\TAZOBACTAM SODIUM
     Indication: PYREXIA
     Dosage: UNK
     Route: 030
     Dates: start: 20161219, end: 20161224
  3. BENDAMUSTINE [Suspect]
     Active Substance: BENDAMUSTINE
     Dosage: 50 MG/M2, CYCLICAL
     Route: 065
     Dates: start: 20130828, end: 20130828
  4. DIOSMINA                           /00426001/ [Concomitant]
     Indication: HAEMORRHOIDS
     Dosage: UNK
     Dates: start: 20070101
  5. BENDAMUSTINE [Suspect]
     Active Substance: BENDAMUSTINE
     Dosage: 50 MG/M2, CYCLICAL
     Route: 065
     Dates: start: 20131009, end: 20131009
  6. BENDAMUSTINE [Suspect]
     Active Substance: BENDAMUSTINE
     Dosage: 50 MG/M2, CYCLICAL
     Route: 065
     Dates: start: 20131010, end: 20131010
  7. RITUXIMAB [Suspect]
     Active Substance: RITUXIMAB
     Dosage: 500 MG/M2, CYCLICAL
     Route: 065
     Dates: start: 20131009, end: 20131009
  8. ACICLOVIR [Concomitant]
     Active Substance: ACYCLOVIR
     Indication: ANTIVIRAL PROPHYLAXIS
     Dosage: UNK
     Dates: start: 20160317
  9. BENDAMUSTINE [Suspect]
     Active Substance: BENDAMUSTINE
     Dosage: 25 MG/M2, CYCLICAL
     Route: 065
     Dates: start: 20131220, end: 20131220
  10. PANTOPRAZOL A [Concomitant]
     Indication: DYSPEPSIA
     Dosage: UNK
     Dates: start: 20070101
  11. MESALAZINA [Concomitant]
     Active Substance: MESALAMINE
     Indication: COLITIS
     Dosage: UNK
     Dates: start: 20160515
  12. BACTRIM [Concomitant]
     Active Substance: SULFAMETHOXAZOLE\TRIMETHOPRIM
     Indication: ANTIFUNGAL PROPHYLAXIS
     Dosage: UNK
     Route: 048
     Dates: start: 20160629
  13. IDELALISIB [Suspect]
     Active Substance: IDELALISIB
     Indication: CHRONIC LYMPHOCYTIC LEUKAEMIA
     Dosage: 150 MG, BID
     Route: 048
     Dates: start: 20160628
  14. BENDAMUSTINE [Suspect]
     Active Substance: BENDAMUSTINE
     Dosage: 70 MG/M2, CYCLICAL
     Route: 065
     Dates: start: 20130604, end: 20130604
  15. BENDAMUSTINE [Suspect]
     Active Substance: BENDAMUSTINE
     Dosage: 25 MG/M2, CYCLICAL
     Route: 065
     Dates: start: 20131219, end: 20131219
  16. TRIMETHOPRIM SULFAMETHOXAZOLE [Concomitant]
     Active Substance: SULFAMETHOXAZOLE\TRIMETHOPRIM
     Indication: ANTIFUNGAL PROPHYLAXIS
     Dosage: UNK
     Dates: start: 20160317
  17. BENDAMUSTINE [Suspect]
     Active Substance: BENDAMUSTINE
     Dosage: 50 MG/M2, CYCLICAL
     Route: 065
     Dates: start: 20160827, end: 20160827
  18. RITUXIMAB [Suspect]
     Active Substance: RITUXIMAB
     Dosage: 500 MG/M2, CYCLICAL
     Route: 065
     Dates: start: 20130703, end: 20130703
  19. RITUXIMAB [Suspect]
     Active Substance: RITUXIMAB
     Dosage: 500 MG/M2, CYCLICAL
     Route: 065
     Dates: start: 20131219, end: 20131219
  20. CEFTRIAXONE. [Concomitant]
     Active Substance: CEFTRIAXONE
     Indication: BRONCHITIS
  21. BENDAMUSTINE [Suspect]
     Active Substance: BENDAMUSTINE
     Dosage: 50 MG/M2, CYCLICAL
     Route: 065
     Dates: start: 20130703, end: 20130703
  22. BENDAMUSTINE [Suspect]
     Active Substance: BENDAMUSTINE
     Dosage: 50 MG/M2, CYCLICAL
     Route: 065
     Dates: start: 20130704, end: 20130704
  23. BENDAMUSTINE [Suspect]
     Active Substance: BENDAMUSTINE
     Dosage: 25 MG/M2, CYCLICAL
     Route: 065
     Dates: start: 20131122, end: 20131122
  24. RITUXIMAB [Suspect]
     Active Substance: RITUXIMAB
     Dosage: 500 MG/M2, CYCLICAL
     Route: 065
     Dates: start: 20131121, end: 20131121
  25. BENDAMUSTINE [Suspect]
     Active Substance: BENDAMUSTINE
     Indication: CHRONIC LYMPHOCYTIC LEUKAEMIA
     Dosage: 70 MG/M2, CYCLICAL
     Route: 065
     Dates: start: 20130603, end: 20130603
  26. BENDAMUSTINE [Suspect]
     Active Substance: BENDAMUSTINE
     Dosage: 25 MG/M2, CYCLICAL
     Route: 065
     Dates: start: 20131121, end: 20131121
  27. RITUXIMAB [Suspect]
     Active Substance: RITUXIMAB
     Indication: CHRONIC LYMPHOCYTIC LEUKAEMIA
     Dosage: 375 MG/M2, CYCLICAL
     Route: 065
     Dates: start: 20130603, end: 20130603
  28. RITUXIMAB [Suspect]
     Active Substance: RITUXIMAB
     Dosage: 500 MG/M2, CYCLICAL
     Route: 065
     Dates: start: 20130827, end: 20130827

REACTIONS (1)
  - Pleural effusion [Recovered/Resolved]

NARRATIVE: CASE EVENT DATE: 20161224
